FAERS Safety Report 9749465 (Version 1)
Quarter: 2013Q4

REPORT INFORMATION
  Report Type: Spontaneous
  Country: DE (occurrence: DE)
  Receive Date: 20131212
  Receipt Date: 20131212
  Transmission Date: 20140711
  Serious: Yes (Hospitalization)
  Sender: FDA-Public Use
  Company Number: PHHY2013DE143684

PATIENT
  Age: 1 Year
  Sex: Male
  Weight: 8.8 kg

DRUGS (2)
  1. TIMOX [Suspect]
     Indication: OFF LABEL USE
     Dosage: 60 MG, QD
  2. TIMOX [Suspect]
     Dosage: 800 MG, QD
     Dates: start: 20131204

REACTIONS (5)
  - Blood electrolytes abnormal [Unknown]
  - Fatigue [Unknown]
  - Overdose [Unknown]
  - Vomiting [Unknown]
  - Drug administered to patient of inappropriate age [Unknown]
